FAERS Safety Report 7063180-8 (Version None)
Quarter: 2010Q4

REPORT INFORMATION
  Report Type: 
  Country: None (occurrence: None)
  Receive Date: 20101026
  Receipt Date: 20100524
  Transmission Date: 20110411
  Serious: Yes (Other)
  Sender: FDA-Public Use
  Company Number: US-PFIZER INC-2010045163

PATIENT
  Sex: Female
  Weight: 79 kg

DRUGS (2)
  1. LIPITOR [Suspect]
     Indication: BLOOD CHOLESTEROL INCREASED
     Dosage: UNK, DAILY
     Route: 048
     Dates: start: 20080101, end: 20080101
  2. LEVOTHYROXINE [Concomitant]
     Indication: HYPOTHYROIDISM
     Dosage: UNK

REACTIONS (5)
  - ASTHENIA [None]
  - BLOOD CHOLESTEROL INCREASED [None]
  - FLUID RETENTION [None]
  - MUSCULAR WEAKNESS [None]
  - SKIN DISORDER [None]
